FAERS Safety Report 13384283 (Version 1)
Quarter: 2017Q1

REPORT INFORMATION
  Report Type: Spontaneous
  Country: US (occurrence: US)
  Receive Date: 20170329
  Receipt Date: 20170329
  Transmission Date: 20170429
  Serious: Yes (Hospitalization)
  Sender: FDA-Public Use
  Company Number: None

PATIENT
  Age: 49 Year
  Sex: Male
  Weight: 93 kg

DRUGS (1)
  1. KETOROLAC TROMETHAMINE. [Suspect]
     Active Substance: KETOROLAC TROMETHAMINE
     Indication: SURGERY
     Dates: start: 20160630, end: 20160630

REACTIONS (2)
  - Blood urea increased [None]
  - Blood creatinine increased [None]

NARRATIVE: CASE EVENT DATE: 20160630
